FAERS Safety Report 6266297-0 (Version None)
Quarter: 2009Q3

REPORT INFORMATION
  Report Type: 
  Country: None (occurrence: None)
  Receive Date: 20090713
  Receipt Date: 20090702
  Transmission Date: 20100115
  Serious: Yes (Other)
  Sender: FDA-Public Use
  Company Number: PHHY2009FR22140

PATIENT
  Sex: Female
  Weight: 62 kg

DRUGS (2)
  1. EXFORGE [Suspect]
     Indication: HYPERTENSION
     Dosage: 160/5 MG QD
     Route: 048
     Dates: start: 20090401, end: 20090603
  2. AERIUS [Concomitant]
     Indication: HYPERSENSITIVITY
     Dosage: UNK
     Route: 048
     Dates: start: 20090401, end: 20090501

REACTIONS (3)
  - HEPATITIS C [None]
  - OEDEMA PERIPHERAL [None]
  - STOMATITIS [None]
